FAERS Safety Report 12978443 (Version 2)
Quarter: 2017Q1

REPORT INFORMATION
  Report Type: Spontaneous
  Country: US (occurrence: US)
  Receive Date: 20161128
  Receipt Date: 20170123
  Transmission Date: 20170428
  Serious: No
  Sender: FDA-Public Use
  Company Number: US-ASTRAZENECA-2016SF13793

PATIENT
  Sex: Male
  Weight: 53.1 kg

DRUGS (1)
  1. TUDORZA PRESSAIR [Suspect]
     Active Substance: ACLIDINIUM BROMIDE
     Indication: EMPHYSEMA
     Dosage: 400UG, 1 PUFF, TWO TIMES A DAY
     Route: 055

REACTIONS (3)
  - Drug dose omission [Unknown]
  - Device failure [Unknown]
  - Dyspnoea [Unknown]
